FAERS Safety Report 11525873 (Version 1)
Quarter: 2015Q3

REPORT INFORMATION
  Report Type: Spontaneous
  Country: US (occurrence: US)
  Receive Date: 20150918
  Receipt Date: 20150918
  Transmission Date: 20151125
  Serious: Yes (Other)
  Sender: FDA-Public Use
  Company Number: US-TAKEDA-TPA2012A03023

PATIENT

DRUGS (3)
  1. ACTOS [Suspect]
     Active Substance: PIOGLITAZONE HYDROCHLORIDE
     Indication: TYPE 2 DIABETES MELLITUS
     Dates: start: 20040216, end: 200410
  2. ACTOS [Suspect]
     Active Substance: PIOGLITAZONE HYDROCHLORIDE
     Dates: start: 20041026, end: 20090131
  3. ACTOS [Suspect]
     Active Substance: PIOGLITAZONE HYDROCHLORIDE
     Dates: start: 20100212, end: 201102

REACTIONS (1)
  - Bladder cancer [Not Recovered/Not Resolved]

NARRATIVE: CASE EVENT DATE: 20111102
